FAERS Safety Report 6573977-6 (Version None)
Quarter: 2010Q1

REPORT INFORMATION
  Report Type: 
  Country: None (occurrence: None)
  Receive Date: 20100208
  Receipt Date: 20100202
  Transmission Date: 20100710
  Serious: Yes (Other)
  Sender: FDA-Public Use
  Company Number: CA-JNJCH-2010003266

PATIENT
  Sex: Male

DRUGS (1)
  1. SINUTAB SINUS NON-DROWSY EXTRA STRENGTH [Suspect]
     Indication: NASOPHARYNGITIS
     Dosage: TEXT:1 CAPLET ONCE
     Route: 048
     Dates: start: 20100201, end: 20100201

REACTIONS (2)
  - BLOOD GLUCOSE DECREASED [None]
  - EXPIRED DRUG ADMINISTERED [None]
